FAERS Safety Report 9027035 (Version 1)
Quarter: 2013Q1

REPORT INFORMATION
  Report Type: Spontaneous
  Country: ES (occurrence: ES)
  Receive Date: 20130123
  Receipt Date: 20130123
  Transmission Date: 20140127
  Serious: Yes (Hospitalization)
  Sender: FDA-Public Use
  Company Number: ES-JNJFOC-20130108419

PATIENT
  Age: 67 Year
  Sex: Female

DRUGS (4)
  1. SIMPONI [Suspect]
     Indication: RHEUMATOID ARTHRITIS
     Route: 058
     Dates: start: 20121213
  2. SIMPONI [Suspect]
     Indication: RHEUMATOID ARTHRITIS
     Route: 058
     Dates: start: 201208
  3. METOJECT [Suspect]
     Indication: PRODUCT USED FOR UNKNOWN INDICATION
     Route: 058
     Dates: start: 201111
  4. MONOCID [Suspect]
     Indication: INFECTION PROPHYLAXIS
     Route: 065
     Dates: start: 201212

REACTIONS (4)
  - Hip fracture [Recovered/Resolved]
  - Aplastic anaemia [Recovered/Resolved]
  - Pancytopenia [Recovered/Resolved]
  - Dizziness [Unknown]
